FAERS Safety Report 23551564 (Version 1)
Quarter: 2024Q1

REPORT INFORMATION
  Report Type: Spontaneous
  Country: US (occurrence: US)
  Receive Date: 20240222
  Receipt Date: 20240222
  Transmission Date: 20240409
  Serious: No
  Sender: FDA-Public Use
  Company Number: US-009507513-2402USA000863

PATIENT
  Sex: Female

DRUGS (1)
  1. BELSOMRA [Suspect]
     Active Substance: SUVOREXANT
     Dosage: 5MG/ONCE DAILY
     Route: 048
     Dates: end: 202312

REACTIONS (3)
  - Sleep disorder [Recovering/Resolving]
  - Depression [Recovering/Resolving]
  - Feeling abnormal [Recovering/Resolving]
